FAERS Safety Report 9327633 (Version 1)
Quarter: 2013Q2

REPORT INFORMATION
  Report Type: Spontaneous
  Country: IT (occurrence: IT)
  Receive Date: 20130604
  Receipt Date: 20130604
  Transmission Date: 20140414
  Serious: Yes (Other)
  Sender: FDA-Public Use
  Company Number: IT-BAXTER-2013BAX020076

PATIENT
  Age: 22 Year
  Sex: Male
  Weight: 62 kg

DRUGS (3)
  1. HOLOXAN [Suspect]
     Indication: TESTIS CANCER
     Route: 042
     Dates: start: 20130508, end: 20130508
  2. CELLTOP_ETOPOSIDE 20.00 MG/ML_SOLUTION FOR INJECTION_VIAL, GLASS [Suspect]
     Indication: TESTIS CANCER
     Route: 042
     Dates: start: 20130508, end: 20130510
  3. CARBOPLATIN [Suspect]
     Indication: TESTIS CANCER
     Route: 042
     Dates: start: 20130509, end: 20130509

REACTIONS (1)
  - Mucosal inflammation [Not Recovered/Not Resolved]
